FAERS Safety Report 11897920 (Version 1)
Quarter: 2016Q1

REPORT INFORMATION
  Report Type: Spontaneous
  Country: US (occurrence: None)
  Receive Date: 20160107
  Receipt Date: 20160107
  Transmission Date: 20160526
  Serious: Yes (Other)
  Sender: FDA-Public Use
  Company Number: None

PATIENT
  Age: 96 Year
  Sex: Female
  Weight: 68.04 kg

DRUGS (17)
  1. ALBTEROL [Concomitant]
  2. HYDRALAZINE [Concomitant]
     Active Substance: HYDRALAZINE HYDROCHLORIDE
  3. LISINOPRIL. [Concomitant]
     Active Substance: LISINOPRIL
  4. BRIMONIDINE [Concomitant]
     Active Substance: BRIMONIDINE TARTRATE
  5. VITAMIN C [Concomitant]
     Active Substance: ASCORBIC ACID
  6. LANTANDPROST [Concomitant]
  7. VITAMIN D [Concomitant]
     Active Substance: CHOLECALCIFEROL
  8. BENEPROTEIN [Concomitant]
  9. KANGAROO FEEDING PUMP [Concomitant]
  10. G-TUBE [Concomitant]
  11. BREATHING MACHINE [Concomitant]
  12. VAPORIZER [Concomitant]
  13. METOPROLOL TARTRATE. [Concomitant]
     Active Substance: METOPROLOL TARTRATE
  14. ATROPINE SULFATE-OPHTHALMIC VALENT [Suspect]
     Active Substance: ATROPINE SULFATE
     Indication: COUGH
     Dosage: 1% (10 MG), PLACE 1 TO 2 DROPS EVERY 4 HRS, AS NEEDED FOR CONGESTION ?
     Route: 060
     Dates: start: 20151211, end: 20151214
  15. DONEPEZIL. [Concomitant]
     Active Substance: DONEPEZIL
  16. SUCTION MACHINE [Concomitant]
  17. ASPIRIN. [Concomitant]
     Active Substance: ASPIRIN

REACTIONS (7)
  - Diarrhoea [None]
  - Therapeutic response unexpected [None]
  - Staring [None]
  - Vomiting [None]
  - Dry mouth [None]
  - Insomnia [None]
  - Agitation [None]

NARRATIVE: CASE EVENT DATE: 20151212
